FAERS Safety Report 9519920 (Version 3)
Quarter: 2014Q2

REPORT INFORMATION
  Report Type: Spontaneous
  Country: US (occurrence: US)
  Receive Date: 20130912
  Receipt Date: 20140415
  Transmission Date: 20141212
  Serious: Yes (Other)
  Sender: FDA-Public Use
  Company Number: US-BAYER-2013-110234

PATIENT
  Age: 45 Year
  Sex: Female
  Weight: 93.42 kg

DRUGS (3)
  1. MIRENA [Suspect]
     Indication: CONTRACEPTION
     Dosage: 20 MCG/24HR, CONT
     Route: 015
     Dates: start: 20130724, end: 20130911
  2. MIRENA [Suspect]
     Indication: MENORRHAGIA
  3. MIRENA [Suspect]
     Indication: MENORRHAGIA

REACTIONS (3)
  - Uterine perforation [Recovered/Resolved]
  - Device dislocation [Recovered/Resolved]
  - Procedural pain [Recovered/Resolved]
